FAERS Safety Report 6983025-1 (Version None)
Quarter: 2010Q3

REPORT INFORMATION
  Report Type: 
  Country: None (occurrence: None)
  Receive Date: 20100914
  Receipt Date: 20100524
  Transmission Date: 20110219
  Serious: No
  Sender: FDA-Public Use
  Company Number: US-PFIZER INC-2010065748

PATIENT
  Sex: Male
  Weight: 77 kg

DRUGS (7)
  1. LYRICA [Suspect]
     Indication: DIABETIC NEUROPATHY
     Dosage: 150 MG, 2X/DAY
     Route: 048
     Dates: start: 20100501
  2. DESIPRAMINE [Concomitant]
     Dosage: UNK
  3. LISINOPRIL [Concomitant]
     Dosage: UNK
  4. POTASSIUM [Concomitant]
     Dosage: UNK
  5. FUROSEMIDE [Concomitant]
     Dosage: UNK
  6. SIMVASTATIN [Concomitant]
     Dosage: UNK
  7. INSULIN [Concomitant]
     Dosage: UNK

REACTIONS (1)
  - DIZZINESS [None]
